FAERS Safety Report 6103464-0 (Version None)
Quarter: 2009Q1

REPORT INFORMATION
  Report Type: 
  Country: None (occurrence: None)
  Receive Date: 20090305
  Receipt Date: 20090227
  Transmission Date: 20090719
  Serious: Yes (Death, Other)
  Sender: FDA-Public Use
  Company Number: PHHY2009JP06105

PATIENT
  Age: 36 Year
  Sex: Male

DRUGS (5)
  1. CYCLOSPORINE [Suspect]
     Indication: RENAL TRANSPLANT
  2. SIMULECT [Suspect]
     Indication: RENAL TRANSPLANT
     Dosage: 20 MG
     Route: 042
  3. MYCOPHENOLATE MOFETIL [Concomitant]
     Indication: RENAL TRANSPLANT
     Route: 048
  4. PREDNISOLONE [Concomitant]
     Indication: RENAL TRANSPLANT
  5. BASILIXIMAB [Concomitant]

REACTIONS (5)
  - ATRIAL FIBRILLATION [None]
  - BRUGADA SYNDROME [None]
  - NEPHROPATHY TOXIC [None]
  - RESUSCITATION [None]
  - SUDDEN DEATH [None]
